FAERS Safety Report 5605817-3 (Version None)
Quarter: 2008Q1

REPORT INFORMATION
  Report Type: 
  Country: None (occurrence: None)
  Receive Date: 20080123
  Receipt Date: 20080111
  Transmission Date: 20080703
  Serious: Yes (Hospitalization)
  Sender: FDA-Public Use
  Company Number: 2007JP004915

PATIENT
  Age: 74 Year
  Sex: Female

DRUGS (3)
  1. VESICARE [Suspect]
     Indication: HYPERTONIC BLADDER
     Dosage: 5 MG, UID/QD, ORAL
     Route: 048
     Dates: start: 20060822, end: 20071018
  2. DOGMATYL(SULPIRIDE) TABLET [Suspect]
     Indication: DEPRESSION
     Dosage: 1DF, UID/QD, ORAL
     Route: 048
     Dates: start: 20040629
  3. LENDORMIN(BROTIZOLAM) TABLET [Suspect]
     Indication: INSOMNIA
     Dosage: 1 DF,UID/QD, ORAL
     Route: 048
     Dates: start: 20040629, end: 20071018

REACTIONS (5)
  - ABASIA [None]
  - AUTONOMIC NERVOUS SYSTEM IMBALANCE [None]
  - GAIT DISTURBANCE [None]
  - HYPOTONIA [None]
  - MUSCULAR WEAKNESS [None]
